FAERS Safety Report 7883268-9 (Version None)
Quarter: 2011Q4

REPORT INFORMATION
  Report Type: 
  Country: None (occurrence: None)
  Receive Date: 20111031
  Receipt Date: 20111017
  Transmission Date: 20120403
  Serious: Yes (Hospitalization)
  Sender: FDA-Public Use
  Company Number: CIP11000561

PATIENT
  Age: 78 Year
  Sex: Female

DRUGS (16)
  1. ACTONEL [Suspect]
     Indication: OSTEOPOROSIS
     Dosage: 150 MG, 1 /MONTH, ORAL
     Route: 048
     Dates: start: 20100507
  2. METHOCARBAMOL [Concomitant]
  3. CITRACAL (CALCIUM CITRATE) [Concomitant]
  4. FOSAMAX [Suspect]
     Indication: OSTEOPOROSIS
     Dosage: 10 MG  DAILY, ORAL
     Route: 048
     Dates: start: 19950101, end: 20001207
  5. ALENDRONATE SODIUM [Suspect]
     Indication: OSTEOPOROSIS
     Dosage: 70 MG, WEEKLY, ORAL
     Route: 048
     Dates: start: 20080502, end: 20090831
  6. LEVOXYL [Concomitant]
  7. ACTONEL [Suspect]
     Indication: OSTEOPOROSIS
     Dosage: 35 MG ONCE WEEKLY, ORAL
     Route: 048
     Dates: start: 20021210, end: 20060101
  8. TOPROL-XL [Concomitant]
  9. RHINOCORT [Concomitant]
  10. ZITHROMAX [Concomitant]
  11. AMOXICILLIN [Concomitant]
  12. MULTIVITAMIN /00097801/ (ASCORBIC ACID, CALCIUM PANTOTHENATE, ERGOCALC [Concomitant]
  13. FOSAMAX [Suspect]
     Indication: OSTEOPOROSIS
     Dosage: 70 MG WEEKLY, ORAL
     Route: 048
     Dates: start: 20001207, end: 20021210
  14. FOSAMAX PLUS D [Suspect]
     Indication: OSTEOPOROSIS
     Dosage: 70 MG , ORAL
     Route: 048
     Dates: start: 20070316, end: 20080411
  15. PATANOL [Concomitant]
  16. HYDROCODONE BITARTRATE AND ACETAMINOPHEN (HYDROCODONE BITARTRATE, PARA [Concomitant]

REACTIONS (19)
  - FEMUR FRACTURE [None]
  - DYSPNOEA [None]
  - INCISION SITE HAEMORRHAGE [None]
  - PRODUCT SUBSTITUTION ISSUE [None]
  - LUNG HYPERINFLATION [None]
  - RADIUS FRACTURE [None]
  - DRUG INEFFECTIVE [None]
  - OBSTRUCTIVE AIRWAYS DISORDER [None]
  - STRESS FRACTURE [None]
  - PULMONARY EMBOLISM [None]
  - PAIN IN EXTREMITY [None]
  - GAIT DISTURBANCE [None]
  - HUMERUS FRACTURE [None]
  - WOUND SECRETION [None]
  - ANAEMIA POSTOPERATIVE [None]
  - FALL [None]
  - PAIN [None]
  - PLEURAL EFFUSION [None]
  - CONTUSION [None]
